FAERS Safety Report 7010040-4 (Version None)
Quarter: 2010Q3

REPORT INFORMATION
  Report Type: 
  Country: None (occurrence: None)
  Receive Date: 20100921
  Receipt Date: 20100913
  Transmission Date: 20110219
  Serious: Yes (Death, Other)
  Sender: FDA-Public Use
  Company Number: 2010US003775

PATIENT
  Age: 61 Year
  Sex: Male

DRUGS (4)
  1. PROGRAF [Suspect]
     Indication: RENAL TRANSPLANT
  2. THYMOGLOBULIN [Concomitant]
  3. SOLU-MEDROL [Concomitant]
  4. PREDNISONE [Concomitant]

REACTIONS (9)
  - CARDIO-RESPIRATORY ARREST [None]
  - COMPUTERISED TOMOGRAM ABNORMAL [None]
  - DEEP VEIN THROMBOSIS [None]
  - HYPERKALAEMIA [None]
  - HYPOTENSION [None]
  - METABOLIC ACIDOSIS [None]
  - RENAL NECROSIS [None]
  - SYSTEMIC MYCOSIS [None]
  - URINE OUTPUT DECREASED [None]
